FAERS Safety Report 21955765 (Version 1)
Quarter: 2023Q1

REPORT INFORMATION
  Report Type: Spontaneous
  Country: US (occurrence: US)
  Receive Date: 20230206
  Receipt Date: 20230206
  Transmission Date: 20230417
  Serious: Yes (Other)
  Sender: FDA-Public Use
  Company Number: US-SA-SAC20230202000721

PATIENT
  Age: 70 Year
  Sex: Male

DRUGS (11)
  1. DUPIXENT [Suspect]
     Active Substance: DUPILUMAB
     Indication: Type 2 diabetes mellitus
     Dosage: 300 MG, QOW
     Route: 058
     Dates: start: 20211103
  2. ACYCLOVIR [Concomitant]
     Active Substance: ACYCLOVIR
  3. ALBUTEROL SULFATE [Concomitant]
     Active Substance: ALBUTEROL SULFATE
  4. CLOBETASOL [Concomitant]
     Active Substance: CLOBETASOL
  5. COMBIVENT [Concomitant]
     Active Substance: ALBUTEROL SULFATE\IPRATROPIUM BROMIDE
  6. FLUOROURACIL [Concomitant]
     Active Substance: FLUOROURACIL
  7. ONDANSETRON [Concomitant]
     Active Substance: ONDANSETRON
  8. PREDNISONE [Concomitant]
     Active Substance: PREDNISONE
  9. PREDNISONE [Concomitant]
     Active Substance: PREDNISONE
  10. QVAR REDIHALER [Concomitant]
     Active Substance: BECLOMETHASONE DIPROPIONATE
  11. SEREVENT DISKUS [Concomitant]
     Active Substance: SALMETEROL XINAFOATE

REACTIONS (2)
  - Diabetes mellitus [Not Recovered/Not Resolved]
  - Product use in unapproved indication [Unknown]

NARRATIVE: CASE EVENT DATE: 20211103
